FAERS Safety Report 14047443 (Version 2)
Quarter: 2018Q2

REPORT INFORMATION
  Report Type: Spontaneous
  Country: US (occurrence: US)
  Receive Date: 20171005
  Receipt Date: 20180614
  Transmission Date: 20180711
  Serious: Yes (Other)
  Sender: FDA-Public Use
  Company Number: US-ASTRAZENECA-2017SE99051

PATIENT
  Age: 7 Year
  Weight: 22.7 kg

DRUGS (19)
  1. LANSOPRAZOLE. [Suspect]
     Active Substance: LANSOPRAZOLE
  2. PNEUMOVAX 23 [Concomitant]
     Active Substance: PNEUMOCOCCAL VACCINE, POLYVALENT 23
     Dates: start: 20151013
  3. BUMETANIDE. [Concomitant]
     Active Substance: BUMETANIDE
     Route: 048
  4. ALBUTEROL. [Concomitant]
     Active Substance: ALBUTEROL
     Dates: start: 20140712
  5. NEXIUM [Suspect]
     Active Substance: ESOMEPRAZOLE MAGNESIUM
     Indication: GASTROOESOPHAGEAL REFLUX DISEASE
     Dosage: 20.0MG UNKNOWN
     Route: 048
     Dates: start: 20130116
  6. AUGMENTIN ES [Concomitant]
     Route: 048
     Dates: start: 20150218, end: 20160202
  7. LABETALOL [Concomitant]
     Active Substance: LABETALOL\LABETALOL HYDROCHLORIDE
     Dosage: 90.0MG UNKNOWN
  8. EPOGEN [Concomitant]
     Active Substance: ERYTHROPOIETIN
  9. PRILOSEC [Suspect]
     Active Substance: OMEPRAZOLE MAGNESIUM
     Route: 048
  10. LOVENOX [Concomitant]
     Active Substance: ENOXAPARIN SODIUM
  11. METOLAZONE. [Concomitant]
     Active Substance: METOLAZONE
     Route: 048
  12. AZITHROMYCIN ANHYDROUS. [Concomitant]
     Active Substance: AZITHROMYCIN ANHYDROUS
     Dosage: 200ML/5ML
     Dates: start: 20140712
  13. NEXIUM 24HR [Suspect]
     Active Substance: ESOMEPRAZOLE MAGNESIUM
  14. NEXIUM [Suspect]
     Active Substance: ESOMEPRAZOLE MAGNESIUM
     Indication: GASTROOESOPHAGEAL REFLUX DISEASE
     Dosage: 20.0MG UNKNOWN
     Route: 048
     Dates: start: 2013, end: 2014
  15. PREDNISONE. [Concomitant]
     Active Substance: PREDNISONE
  16. AUGMENTIN ES [Concomitant]
     Dosage: AMOXICILLIN-POT CLAVULANATE
     Route: 048
     Dates: start: 20141208, end: 20160202
  17. AMLODIPINE [Concomitant]
     Active Substance: AMLODIPINE BESYLATE
     Route: 048
  18. A/B OTIC [Concomitant]
     Dosage: 2 DROPS
     Dates: start: 20141202, end: 20160202
  19. PREDNISONE. [Concomitant]
     Active Substance: PREDNISONE
     Dosage: 15MG/15ML
     Dates: start: 20140712

REACTIONS (8)
  - End stage renal disease [Unknown]
  - Dehydration [Unknown]
  - Constipation [Unknown]
  - Renal failure [Unknown]
  - Chronic kidney disease [Unknown]
  - Nephrogenic anaemia [Unknown]
  - Hypertension [Unknown]
  - Nephrotic syndrome [Unknown]

NARRATIVE: CASE EVENT DATE: 20150826
